FAERS Safety Report 24846153 (Version 2)
Quarter: 2025Q1

REPORT INFORMATION
  Report Type: Spontaneous
  Country: CA (occurrence: CA)
  Receive Date: 20250115
  Receipt Date: 20250221
  Transmission Date: 20250409
  Serious: Yes (Other)
  Sender: NOVARTIS
  Company Number: CA-SANDOZ-SDZ2025CA001559

PATIENT
  Sex: Female

DRUGS (11)
  1. LEVOFLOXACIN [Suspect]
     Active Substance: LEVOFLOXACIN
     Indication: Pneumonia
     Route: 065
  2. MOXIFLOXACIN [Suspect]
     Active Substance: MOXIFLOXACIN
     Indication: Pneumonia
     Route: 065
  3. AMOXICILLIN\CLAVULANIC ACID [Suspect]
     Active Substance: AMOXICILLIN\CLAVULANIC ACID
     Indication: Pneumonia
     Route: 065
  4. TRAMETINIB [Suspect]
     Active Substance: TRAMETINIB
     Indication: Metastatic malignant melanoma
     Route: 065
  5. TRAMETINIB [Suspect]
     Active Substance: TRAMETINIB
     Route: 065
  6. CEFADROXIL [Suspect]
     Active Substance: CEFADROXIL
     Indication: Cellulitis
     Route: 065
  7. DURVALUMAB [Suspect]
     Active Substance: DURVALUMAB
     Indication: Metastatic malignant melanoma
     Route: 065
  8. IPILIMUMAB [Suspect]
     Active Substance: IPILIMUMAB
     Indication: Metastatic malignant melanoma
     Route: 065
  9. NIVOLUMAB [Suspect]
     Active Substance: NIVOLUMAB
     Indication: Metastatic malignant melanoma
     Route: 065
  10. NIVOLUMAB [Suspect]
     Active Substance: NIVOLUMAB
     Route: 065
  11. ALDESLEUKIN [Concomitant]
     Active Substance: ALDESLEUKIN
     Indication: Metastatic malignant melanoma
     Route: 065

REACTIONS (5)
  - Hypomagnesaemia [Recovered/Resolved]
  - Immune-mediated enterocolitis [Recovered/Resolved]
  - Immune-mediated lung disease [Recovered/Resolved]
  - Gastrointestinal disorder [Recovered/Resolved]
  - Diarrhoea [Recovered/Resolved]
